FAERS Safety Report 9278891 (Version 1)
Quarter: 2013Q2

REPORT INFORMATION
  Report Type: Spontaneous
  Country: FR (occurrence: FR)
  Receive Date: 20130508
  Receipt Date: 20130508
  Transmission Date: 20140414
  Serious: Yes (Other)
  Sender: FDA-Public Use
  Company Number: FR-ASTRAZENECA-2013SE29984

PATIENT
  Sex: Male

DRUGS (3)
  1. BRILIQUE [Suspect]
     Indication: MYOCARDIAL INFARCTION
     Route: 048
     Dates: start: 20130329
  2. KARDEGIC [Concomitant]
  3. CARDENSIEL [Concomitant]

REACTIONS (1)
  - Pancreatic mass [Not Recovered/Not Resolved]
